FAERS Safety Report 10174984 (Version 1)
Quarter: 2014Q2

REPORT INFORMATION
  Report Type: Spontaneous
  Country: FR (occurrence: FR)
  Receive Date: 20140515
  Receipt Date: 20140515
  Transmission Date: 20141212
  Serious: Yes (Hospitalization)
  Sender: FDA-Public Use
  Company Number: PHHY2014FR058964

PATIENT
  Age: 84 Year
  Sex: Female

DRUGS (7)
  1. ACLASTA [Suspect]
     Indication: OSTEOPOROSIS
     Dosage: 5 MG, SINGLE
     Route: 042
     Dates: start: 20140104
  2. ATACAND [Suspect]
     Dosage: 1 DF, DAILY
     Route: 048
     Dates: start: 2012, end: 20140122
  3. PLAVIX [Concomitant]
     Dosage: 75 MG, QD
     Route: 048
     Dates: end: 20140122
  4. KARDEGIC [Concomitant]
     Dosage: 75 MG, QD
     Dates: end: 20140122
  5. MOCLAMINE [Concomitant]
     Dosage: 150 MG, BID
     Route: 048
     Dates: start: 20131110, end: 20140122
  6. TAHOR [Concomitant]
     Dosage: 10 MG, QD
     Route: 048
     Dates: end: 20140122
  7. INIPOMP [Concomitant]
     Dosage: 20 MG, QD
     Route: 048
     Dates: end: 20140122

REACTIONS (1)
  - Thrombocytopenia [Recovered/Resolved]
